FAERS Safety Report 12769848 (Version 39)
Quarter: 2023Q1

REPORT INFORMATION
  Report Type: Spontaneous
  Country: CA (occurrence: CA)
  Receive Date: 20160922
  Receipt Date: 20230109
  Transmission Date: 20230418
  Serious: Yes (Life-Threatening, Hospitalization, Other)
  Sender: FDA-Public Use
  Company Number: CA-BRISTOL-MYERS SQUIBB COMPANY-BMS-2016-076833

PATIENT
  Age: 58 Year
  Sex: Male

DRUGS (90)
  1. ORENCIA [Suspect]
     Active Substance: ABATACEPT
     Indication: Systemic lupus erythematosus
     Dosage: UNK
  2. ORENCIA [Suspect]
     Active Substance: ABATACEPT
     Indication: Rheumatoid arthritis
  3. OXYCODONE HYDROCHLORIDE [Concomitant]
     Active Substance: OXYCODONE HYDROCHLORIDE
     Indication: Pain
  4. HUMIRA [Concomitant]
     Active Substance: ADALIMUMAB
     Indication: Systemic lupus erythematosus
     Route: 058
  5. HUMIRA [Concomitant]
     Active Substance: ADALIMUMAB
     Indication: Rheumatoid arthritis
  6. REMICADE [Concomitant]
     Active Substance: INFLIXIMAB
     Indication: Rheumatoid arthritis
     Route: 042
  7. REMICADE [Concomitant]
     Active Substance: INFLIXIMAB
     Indication: Systemic lupus erythematosus
  8. GOLD SODIUM THIOMALATE [Concomitant]
     Active Substance: GOLD SODIUM THIOMALATE
     Indication: Systemic lupus erythematosus
     Dosage: UNK
  9. GOLD SODIUM THIOMALATE [Concomitant]
     Active Substance: GOLD SODIUM THIOMALATE
     Indication: Rheumatoid arthritis
     Dosage: UNK
     Route: 042
  10. GOLD SODIUM THIOMALATE [Concomitant]
     Active Substance: GOLD SODIUM THIOMALATE
     Dosage: UNK
     Route: 051
  11. CANNABIS SATIVA FLOWERING TOP [Concomitant]
     Active Substance: CANNABIS SATIVA FLOWERING TOP
     Indication: Pain
     Dosage: UNK
  12. XELJANZ [Concomitant]
     Active Substance: TOFACITINIB CITRATE
     Indication: Product used for unknown indication
     Dosage: UNK UNK, BID
     Route: 048
  13. XELJANZ [Concomitant]
     Active Substance: TOFACITINIB CITRATE
     Dosage: 5 MILLIGRAM
  14. HYDROXYCHLOROQUINE [Concomitant]
     Active Substance: HYDROXYCHLOROQUINE
     Indication: Rheumatoid arthritis
     Dosage: 400 MILLIGRAM
  15. HYDROXYCHLOROQUINE [Concomitant]
     Active Substance: HYDROXYCHLOROQUINE
     Indication: Systemic lupus erythematosus
  16. HYDROXYCHLOROQUINE [Concomitant]
     Active Substance: HYDROXYCHLOROQUINE
     Route: 048
  17. HYDROXYCHLOROQUINE [Concomitant]
     Active Substance: HYDROXYCHLOROQUINE
     Indication: Systemic lupus erythematosus
     Dosage: 400 MILLIGRAM
  18. HYDROXYCHLOROQUINE [Concomitant]
     Active Substance: HYDROXYCHLOROQUINE
     Indication: Rheumatoid arthritis
  19. PLAQUENIL [Concomitant]
     Active Substance: HYDROXYCHLOROQUINE SULFATE
     Indication: Systemic lupus erythematosus
     Route: 048
  20. PLAQUENIL [Concomitant]
     Active Substance: HYDROXYCHLOROQUINE SULFATE
     Indication: Rheumatoid arthritis
  21. OXYQUINOLINE SULFATE [Concomitant]
     Active Substance: OXYQUINOLINE SULFATE
     Indication: Systemic lupus erythematosus
     Dosage: UNK
  22. OXYQUINOLINE SULFATE [Concomitant]
     Active Substance: OXYQUINOLINE SULFATE
     Indication: Rheumatoid arthritis
  23. RITUXIMAB [Concomitant]
     Active Substance: RITUXIMAB
     Indication: Rheumatoid arthritis
     Dosage: UNK
     Route: 042
  24. RITUXIMAB [Concomitant]
     Active Substance: RITUXIMAB
     Indication: Systemic lupus erythematosus
     Dosage: UNK
  25. HYDROXYCHLOROQUINE SULFATE [Concomitant]
     Active Substance: HYDROXYCHLOROQUINE SULFATE
     Indication: Rheumatoid arthritis
  26. HYDROXYCHLOROQUINE SULFATE [Concomitant]
     Active Substance: HYDROXYCHLOROQUINE SULFATE
     Indication: Systemic lupus erythematosus
  27. ILARIS [Concomitant]
     Active Substance: CANAKINUMAB
     Indication: Systemic lupus erythematosus
     Dosage: UNK
     Route: 058
  28. ILARIS [Concomitant]
     Active Substance: CANAKINUMAB
     Indication: Rheumatoid arthritis
     Dosage: UNK
  29. MINOCYCLINE [Concomitant]
     Active Substance: MINOCYCLINE HYDROCHLORIDE
     Indication: Pain
     Dosage: UNK
  30. OXYCODONE [Concomitant]
     Active Substance: OXYCODONE
     Indication: Pain
     Dosage: 10 MILLIGRAM
  31. MINOCYCLINE HYDROCHLORIDE [Concomitant]
     Active Substance: MINOCYCLINE HYDROCHLORIDE
     Indication: Product used for unknown indication
     Dosage: UNK
  32. CANNABIS SATIVA SUBSP. INDICA TOP [Concomitant]
     Active Substance: CANNABIS SATIVA SUBSP. INDICA TOP
     Indication: Pain
     Dosage: UNK
  33. METHOTREXATE SODIUM [Concomitant]
     Active Substance: METHOTREXATE SODIUM
     Indication: Systemic lupus erythematosus
  34. METHOTREXATE SODIUM [Concomitant]
     Active Substance: METHOTREXATE SODIUM
     Indication: Rheumatoid arthritis
  35. LEFLUNOMIDE [Concomitant]
     Active Substance: LEFLUNOMIDE
     Indication: Systemic lupus erythematosus
     Dosage: UNK
     Route: 048
  36. LEFLUNOMIDE [Concomitant]
     Active Substance: LEFLUNOMIDE
     Indication: Rheumatoid arthritis
     Dosage: UNK
  37. CANNABIS SATIVA FLOWERING TOP [Concomitant]
     Active Substance: CANNABIS SATIVA FLOWERING TOP
     Indication: Pain
     Dosage: UNK
  38. GOLD SODIUM THIOMALATE [Concomitant]
     Active Substance: GOLD SODIUM THIOMALATE
     Indication: Systemic lupus erythematosus
     Dosage: UNK
  39. GOLD SODIUM THIOMALATE [Concomitant]
     Active Substance: GOLD SODIUM THIOMALATE
     Indication: Rheumatoid arthritis
     Dosage: UNK
     Route: 042
  40. GOLD SODIUM THIOMALATE [Concomitant]
     Active Substance: GOLD SODIUM THIOMALATE
     Dosage: UNK
     Route: 051
  41. GOLD SODIUM THIOMALATE [Concomitant]
     Active Substance: GOLD SODIUM THIOMALATE
     Dosage: UNK
     Route: 042
  42. ARAVA [Concomitant]
     Active Substance: LEFLUNOMIDE
     Indication: Systemic lupus erythematosus
     Dosage: UNK
  43. ARAVA [Concomitant]
     Active Substance: LEFLUNOMIDE
     Indication: Rheumatoid arthritis
  44. METHOTREXATE [Concomitant]
     Active Substance: METHOTREXATE
     Indication: Rheumatoid arthritis
     Dosage: UNK
  45. METHOTREXATE [Concomitant]
     Active Substance: METHOTREXATE
     Indication: Systemic lupus erythematosus
     Dosage: UNK
     Route: 013
  46. GOLD [Concomitant]
     Active Substance: GOLD
     Indication: Rheumatoid arthritis
     Dosage: UNK
  47. GOLD [Concomitant]
     Active Substance: GOLD
     Dosage: UNK
     Route: 058
  48. SULFASALAZINE [Concomitant]
     Active Substance: SULFASALAZINE
     Indication: Rheumatoid arthritis
     Dosage: 500 MILLIGRAM
  49. SULFASALAZINE [Concomitant]
     Active Substance: SULFASALAZINE
     Indication: Systemic lupus erythematosus
     Dosage: UNK, BID
     Route: 048
  50. RITUXAN [Concomitant]
     Active Substance: RITUXIMAB
     Indication: Rheumatoid arthritis
     Dosage: UNK
     Route: 042
  51. RITUXAN [Concomitant]
     Active Substance: RITUXIMAB
     Indication: Systemic lupus erythematosus
  52. REMICADE [Concomitant]
     Active Substance: INFLIXIMAB
     Indication: Rheumatoid arthritis
     Dosage: UNK
  53. REMICADE [Concomitant]
     Active Substance: INFLIXIMAB
     Indication: Systemic lupus erythematosus
     Dosage: UNK
  54. REMICADE [Concomitant]
     Active Substance: INFLIXIMAB
     Dosage: POWDER SOLUTION FOR INTRAVEOUS
  55. LEFLUNOMIDE [Concomitant]
     Active Substance: LEFLUNOMIDE
     Indication: Systemic lupus erythematosus
     Dosage: UNK
  56. LEFLUNOMIDE [Concomitant]
     Active Substance: LEFLUNOMIDE
     Indication: Rheumatoid arthritis
  57. HYDROXYCHLOROQUINE [Concomitant]
     Active Substance: HYDROXYCHLOROQUINE
     Indication: Systemic lupus erythematosus
     Dosage: UNK
  58. HYDROXYCHLOROQUINE [Concomitant]
     Active Substance: HYDROXYCHLOROQUINE
     Dosage: UNK
     Route: 048
  59. HYDROXYCHLOROQUINE [Concomitant]
     Active Substance: HYDROXYCHLOROQUINE
     Dosage: UNK
  60. HYDROXYCHLOROQUINE [Concomitant]
     Active Substance: HYDROXYCHLOROQUINE
     Indication: Rheumatoid arthritis
     Dosage: 500 MILLIGRAM
     Route: 048
  61. HYDROXYCHLOROQUINE [Concomitant]
     Active Substance: HYDROXYCHLOROQUINE
     Indication: Systemic lupus erythematosus
  62. HUMIRA [Concomitant]
     Active Substance: ADALIMUMAB
     Indication: Systemic lupus erythematosus
     Dosage: UNK
     Route: 058
  63. HUMIRA [Concomitant]
     Active Substance: ADALIMUMAB
     Indication: Rheumatoid arthritis
     Dosage: UNK
  64. ENBREL [Concomitant]
     Active Substance: ETANERCEPT
     Indication: Rheumatoid arthritis
     Dosage: UNK
     Route: 058
  65. ENBREL [Concomitant]
     Active Substance: ETANERCEPT
     Indication: Systemic lupus erythematosus
     Dosage: UNK
  66. ANAKINRA [Concomitant]
     Active Substance: ANAKINRA
     Indication: Rheumatoid arthritis
     Dosage: UNK
  67. ANAKINRA [Concomitant]
     Active Substance: ANAKINRA
     Indication: Systemic lupus erythematosus
     Dosage: UNK
  68. ACTEMRA [Concomitant]
     Active Substance: TOCILIZUMAB
     Indication: Rheumatoid arthritis
     Dosage: UNK
  69. ACTEMRA [Concomitant]
     Active Substance: TOCILIZUMAB
     Indication: Systemic lupus erythematosus
  70. RITUXIMAB;URELUMAB [Concomitant]
     Indication: Product used for unknown indication
     Dosage: UNK
  71. LYRICA [Concomitant]
     Active Substance: PREGABALIN
     Indication: Pain
     Dosage: UNK
     Route: 048
  72. LYRICA [Concomitant]
     Active Substance: PREGABALIN
     Dosage: UNK
  73. KINERET [Concomitant]
     Active Substance: ANAKINRA
     Indication: Product used for unknown indication
     Dosage: UNK
  74. PREDNISONE [Concomitant]
     Active Substance: PREDNISONE
     Indication: Product used for unknown indication
     Dosage: 7 MILLIGRAM, QD
  75. PREDNISONE [Concomitant]
     Active Substance: PREDNISONE
  76. URELUMAB [Concomitant]
     Active Substance: URELUMAB
     Indication: Product used for unknown indication
     Dosage: UNK
  77. XELJANZ [Concomitant]
     Active Substance: TOFACITINIB CITRATE
     Indication: Rheumatoid arthritis
     Dosage: 5 MILLIGRAM, Q2WK
     Route: 048
  78. XELJANZ [Concomitant]
     Active Substance: TOFACITINIB CITRATE
     Dosage: 5 MILLIGRAM, BID
     Route: 048
  79. ACTEMRA [Concomitant]
     Active Substance: TOCILIZUMAB
     Indication: Product used for unknown indication
  80. CANNABIS SATIVA FLOWERING TOP [Concomitant]
     Active Substance: CANNABIS SATIVA FLOWERING TOP
     Indication: Pain
  81. ENBREL [Concomitant]
     Active Substance: ETANERCEPT
     Indication: Rheumatoid arthritis
  82. ENBREL [Concomitant]
     Active Substance: ETANERCEPT
     Indication: Systemic lupus erythematosus
     Route: 058
  83. OXYCODONE [Concomitant]
     Active Substance: OXYCODONE
     Indication: Pain
     Dosage: 10 MILLIGRAM
  84. SULFASALAZINE [Concomitant]
     Active Substance: SULFASALAZINE
     Indication: Rheumatoid arthritis
  85. RITUXIMAB [Concomitant]
     Active Substance: RITUXIMAB
     Indication: Rheumatoid arthritis
  86. RITUXIMAB [Concomitant]
     Active Substance: RITUXIMAB
     Indication: Systemic lupus erythematosus
     Route: 042
  87. RITUXIMAB [Concomitant]
     Active Substance: RITUXIMAB
     Route: 042
  88. RITUXIMAB [Concomitant]
     Active Substance: RITUXIMAB
  89. plaquenil (hydroxychloroquine phosphate [Concomitant]
     Indication: Rheumatoid arthritis
     Route: 048
  90. plaquenil (hydroxychloroquine phosphate [Concomitant]
     Indication: Systemic lupus erythematosus

REACTIONS (29)
  - Apparent death [Unknown]
  - Arthropathy [Unknown]
  - Drug hypersensitivity [Unknown]
  - Drug intolerance [Unknown]
  - Feeling abnormal [Unknown]
  - Stomatitis [Unknown]
  - Rheumatoid arthritis [Unknown]
  - Urticaria [Unknown]
  - Haemoglobin decreased [Unknown]
  - Herpes zoster [Unknown]
  - Interstitial lung disease [Unknown]
  - Intestinal sepsis [Unknown]
  - Photosensitivity reaction [Unknown]
  - C-reactive protein abnormal [Unknown]
  - C-reactive protein increased [Unknown]
  - Deep vein thrombosis [Unknown]
  - Diverticulitis [Unknown]
  - Drug ineffective [Unknown]
  - Joint swelling [Unknown]
  - Myocardial infarction [Unknown]
  - Pain [Unknown]
  - Pulmonary embolism [Unknown]
  - Pulmonary thrombosis [Unknown]
  - Red blood cell sedimentation rate increased [Unknown]
  - Renal failure [Unknown]
  - Sepsis [Unknown]
  - Terminal state [Unknown]
  - Thrombosis [Unknown]
  - Red blood cell sedimentation rate abnormal [Unknown]
